FAERS Safety Report 4454669-6 (Version None)
Quarter: 2004Q3

REPORT INFORMATION
  Report Type: 
  Country: None (occurrence: None)
  Receive Date: 20040920
  Receipt Date: 20040920
  Transmission Date: 20050211
  Serious: No
  Sender: FDA-Public Use
  Company Number: None

PATIENT
  Sex: Female
  Weight: 54.4316 kg

DRUGS (2)
  1. ZOLOFT [Suspect]
     Indication: ANXIETY
     Dosage: 50 MG ONCE A DAY ORAL
     Route: 048
     Dates: start: 20021201, end: 20040919
  2. ZOLOFT [Suspect]
     Indication: DEPRESSION
     Dosage: 50 MG ONCE A DAY ORAL
     Route: 048
     Dates: start: 20021201, end: 20040919

REACTIONS (16)
  - AGITATION [None]
  - ALOPECIA [None]
  - CONDUCTION DISORDER [None]
  - CONFUSIONAL STATE [None]
  - DEPRESSION [None]
  - DISORIENTATION [None]
  - DRUG DEPENDENCE [None]
  - FATIGUE [None]
  - HEART RATE INCREASED [None]
  - HOT FLUSH [None]
  - INFLUENZA LIKE ILLNESS [None]
  - LOSS OF CONSCIOUSNESS [None]
  - MADAROSIS [None]
  - NERVOUS SYSTEM DISORDER [None]
  - PHOTOPSIA [None]
  - RASH [None]
